FAERS Safety Report 7000247-4 (Version None)
Quarter: 2010Q3

REPORT INFORMATION
  Report Type: 
  Country: None (occurrence: None)
  Receive Date: 20100920
  Receipt Date: 20070817
  Transmission Date: 20110219
  Serious: Yes (Other)
  Sender: FDA-Public Use
  Company Number: US-ASTRAZENECA-2006UW11910

PATIENT
  Sex: Male
  Weight: 99.3 kg

DRUGS (15)
  1. SEROQUEL [Suspect]
     Indication: BIPOLAR DISORDER
     Route: 048
     Dates: start: 20030101
  2. SEROQUEL [Suspect]
     Indication: SCHIZOPHRENIA
     Route: 048
     Dates: start: 20030101
  3. SEROQUEL [Suspect]
     Indication: DEPRESSION
     Route: 048
     Dates: start: 20030101
  4. SEROQUEL [Suspect]
     Dosage: STRENGTH 100 MG, 200 MG, 300 MG, 800 MG.  DOSE 100 MG - 3200 MG
     Route: 048
     Dates: start: 20030107
  5. SEROQUEL [Suspect]
     Dosage: STRENGTH 100 MG, 200 MG, 300 MG, 800 MG.  DOSE 100 MG - 3200 MG
     Route: 048
     Dates: start: 20030107
  6. SEROQUEL [Suspect]
     Dosage: STRENGTH 100 MG, 200 MG, 300 MG, 800 MG.  DOSE 100 MG - 3200 MG
     Route: 048
     Dates: start: 20030107
  7. HALDOL [Concomitant]
     Dosage: 100 MG EVERY FOUR WEEKS
     Route: 030
  8. HALDOL [Concomitant]
  9. THORAZINE [Concomitant]
  10. HALOPERIDOL LACTATE [Concomitant]
     Indication: AGGRESSION
     Dosage: STRENGTH 5 MG/1 ML. DOSE 10 MG IS EQUAL TO 2 ML
     Route: 030
  11. HALOPERIDOL [Concomitant]
     Indication: AGGRESSION
     Dosage: TWO TABLETS EVERY FOUR HOURS AS NEEDED  DOSE - 10 MG
     Route: 048
  12. COGENTIN [Concomitant]
     Dosage: STRENGTH - 2 MG   DOSE - 2 MG, 4 MG
  13. HYDROCHLOROTHIAZIDE [Concomitant]
  14. DEPAKOTE ER [Concomitant]
  15. MAGNESIUM HYDROXIDE TAB [Concomitant]
     Indication: CONSTIPATION
     Route: 048

REACTIONS (3)
  - DIABETES MELLITUS [None]
  - DIABETIC COMA [None]
  - DIABETIC KETOACIDOSIS [None]
